FAERS Safety Report 7241405-3 (Version None)
Quarter: 2011Q1

REPORT INFORMATION
  Report Type: 
  Country: None (occurrence: None)
  Receive Date: 20110114
  Receipt Date: 20110104
  Transmission Date: 20110831
  Serious: Yes (Hospitalization)
  Sender: FDA-Public Use
  Company Number: 2011SP000032

PATIENT
  Age: 71 Year
  Sex: Male
  Weight: 81.6 kg

DRUGS (4)
  1. TYLENOL (CAPLET) [Concomitant]
  2. OTHER HYPNOTICS AND SEDATIVES [Concomitant]
  3. LUNESTA [Suspect]
     Indication: INSOMNIA
     Dosage: 1 MG;HS;ORAL
     Route: 048
     Dates: start: 20100101
  4. COUMADIN [Concomitant]

REACTIONS (4)
  - DRUG EFFECT DECREASED [None]
  - INITIAL INSOMNIA [None]
  - THROMBOSIS [None]
  - ISCHAEMIC STROKE [None]
